FAERS Safety Report 4661604-4 (Version None)
Quarter: 2005Q2

REPORT INFORMATION
  Report Type: 
  Country: None (occurrence: None)
  Receive Date: 20050513
  Receipt Date: 20050210
  Transmission Date: 20051028
  Serious: Yes (Hospitalization, Disabling)
  Sender: FDA-Public Use
  Company Number: US-MERCK-0502USA01605

PATIENT
  Age: 79 Year
  Sex: Female
  Weight: 77 kg

DRUGS (9)
  1. VIOXX [Suspect]
     Indication: ARTHRITIS
     Route: 048
     Dates: start: 20000414, end: 20020830
  2. VIOXX [Suspect]
     Route: 048
     Dates: start: 20000414, end: 20020830
  3. NORVASC [Concomitant]
     Indication: HYPERTENSION
     Route: 065
     Dates: start: 20030601, end: 20041201
  4. ZOCOR [Concomitant]
     Indication: HYPERLIPIDAEMIA
     Route: 048
     Dates: start: 19990101
  5. PRINIVIL [Concomitant]
     Route: 048
     Dates: start: 20020601
  6. LIPITOR [Concomitant]
     Indication: HYPERLIPIDAEMIA
     Route: 065
     Dates: start: 19990101
  7. RELAFEN [Concomitant]
     Route: 065
     Dates: start: 20000901
  8. TYLENOL (CAPLET) [Concomitant]
     Route: 065
     Dates: start: 19800101
  9. VASOTEC [Concomitant]
     Indication: HYPERTENSION
     Route: 048
     Dates: start: 20001101

REACTIONS (17)
  - ADVERSE EVENT [None]
  - AORTIC VALVE INCOMPETENCE [None]
  - ARTERIOSCLEROSIS [None]
  - ATRIAL BIGEMINY [None]
  - BURSITIS [None]
  - CARDIAC DISORDER [None]
  - CARDIOVASCULAR DISORDER [None]
  - CEREBROVASCULAR ACCIDENT [None]
  - CHRONIC SINUSITIS [None]
  - DEPRESSION [None]
  - GOITRE [None]
  - HYPERTENSION [None]
  - MULTI-ORGAN DISORDER [None]
  - PAIN [None]
  - SYNCOPE [None]
  - VENTRICULAR HYPERTROPHY [None]
  - VISUAL DISTURBANCE [None]
